FAERS Safety Report 13903545 (Version 2)
Quarter: 2017Q3

REPORT INFORMATION
  Report Type: Spontaneous
  Country: JP (occurrence: JP)
  Receive Date: 20170824
  Receipt Date: 20170907
  Transmission Date: 20171127
  Serious: Yes (Life-Threatening, Other)
  Sender: FDA-Public Use
  Company Number: JP-PFIZER INC-2017334280

PATIENT
  Age: 66 Year
  Sex: Female
  Weight: 48.8 kg

DRUGS (2)
  1. LYRICA [Suspect]
     Active Substance: PREGABALIN
     Indication: LUMBAR SPINAL STENOSIS
     Dosage: 75 MG AT THE MORNING, AND 150 MG AT THE EVENING
     Route: 048
     Dates: start: 20160630
  2. TRAMAL [Suspect]
     Active Substance: TRAMADOL
     Indication: LUMBAR SPINAL STENOSIS
     Dosage: 25 MG, DAILY
     Route: 048
     Dates: start: 20160630, end: 20160801

REACTIONS (1)
  - Coma hepatic [Recovered/Resolved]

NARRATIVE: CASE EVENT DATE: 20160722
